FAERS Safety Report 14182344 (Version 1)
Quarter: 2017Q4

REPORT INFORMATION
  Report Type: Spontaneous
  Country: FR (occurrence: FR)
  Receive Date: 20171113
  Receipt Date: 20171113
  Transmission Date: 20180321
  Serious: Yes (Hospitalization)
  Sender: FDA-Public Use
  Company Number: FR-ROCHE-2019351

PATIENT
  Age: 81 Year
  Sex: Female
  Weight: 52 kg

DRUGS (3)
  1. COTELLIC [Suspect]
     Active Substance: COBIMETINIB
     Indication: MALIGNANT MELANOMA
     Route: 048
     Dates: start: 20170911, end: 20171015
  2. ZELBORAF [Suspect]
     Active Substance: VEMURAFENIB
     Indication: MALIGNANT MELANOMA
     Route: 048
     Dates: start: 20170625, end: 20170916
  3. ZELBORAF [Suspect]
     Active Substance: VEMURAFENIB
     Route: 048
     Dates: start: 20170917, end: 20171016

REACTIONS (3)
  - Rash [Not Recovered/Not Resolved]
  - Diarrhoea [Not Recovered/Not Resolved]
  - Mixed liver injury [Not Recovered/Not Resolved]

NARRATIVE: CASE EVENT DATE: 20171013
